FAERS Safety Report 4599444-7 (Version None)
Quarter: 2005Q1

REPORT INFORMATION
  Report Type: 
  Country: None (occurrence: None)
  Receive Date: 20050127
  Receipt Date: 20041014
  Transmission Date: 20050727
  Serious: No
  Sender: FDA-Public Use
  Company Number: USA041081202

PATIENT
  Age: 56 Year
  Sex: Male

DRUGS (2)
  1. STRATTERA [Suspect]
     Indication: DISTURBANCE IN ATTENTION
     Dosage: 40 MG DAY
     Dates: start: 20041012
  2. WELLBUTRIN [Concomitant]

REACTIONS (1)
  - DYSURIA [None]
